FAERS Safety Report 21126738 (Version 2)
Quarter: 2022Q3

REPORT INFORMATION
  Report Type: Spontaneous
  Country: AU (occurrence: AU)
  Receive Date: 20220725
  Receipt Date: 20220801
  Transmission Date: 20221026
  Serious: No
  Sender: FDA-Public Use
  Company Number: AU-NOVARTISPH-NVSC2022AU151391

PATIENT
  Age: 71 Year
  Sex: Female

DRUGS (3)
  1. IMATINIB [Suspect]
     Active Substance: IMATINIB
     Indication: Chronic myeloid leukaemia
     Dosage: 400 MG, QD
     Route: 065
  2. IMATINIB [Suspect]
     Active Substance: IMATINIB
     Dosage: 600 MG, QD
     Route: 065
  3. IMATINIB [Suspect]
     Active Substance: IMATINIB
     Dosage: 800 MG, QD
     Route: 065

REACTIONS (6)
  - Toxicity to various agents [Not Recovered/Not Resolved]
  - Lethargy [Unknown]
  - Oesophagitis [Unknown]
  - Dyspepsia [Unknown]
  - Diarrhoea [Unknown]
  - Weight decreased [Unknown]
